FAERS Safety Report 11924842 (Version 3)
Quarter: 2016Q2

REPORT INFORMATION
  Report Type: Spontaneous
  Country: US (occurrence: US)
  Receive Date: 20160118
  Receipt Date: 20160419
  Transmission Date: 20160815
  Serious: Yes (Other)
  Sender: FDA-Public Use
  Company Number: US-OTSUKA-2016_001128

PATIENT
  Sex: Female

DRUGS (3)
  1. ZOLOFT [Concomitant]
     Active Substance: SERTRALINE HYDROCHLORIDE
     Indication: PRODUCT USED FOR UNKNOWN INDICATION
     Dosage: UNK
     Route: 065
  2. ABILIFY MAINTENA [Suspect]
     Active Substance: ARIPIPRAZOLE
     Indication: BIPOLAR DISORDER
     Dosage: 400 MG, QM
     Route: 030
  3. ABILIFY MAINTENA [Suspect]
     Active Substance: ARIPIPRAZOLE
     Dosage: 300 MG, QM
     Route: 030

REACTIONS (10)
  - Feeling abnormal [Unknown]
  - Drug monitoring procedure incorrectly performed [Unknown]
  - Off label use [Unknown]
  - Pain in extremity [Recovered/Resolved]
  - Movement disorder [Not Recovered/Not Resolved]
  - Muscle spasms [Recovered/Resolved]
  - Musculoskeletal pain [Recovered/Resolved]
  - Extrapyramidal disorder [Not Recovered/Not Resolved]
  - Akathisia [Not Recovered/Not Resolved]
  - Musculoskeletal stiffness [Unknown]
